FAERS Safety Report 12064287 (Version 1)
Quarter: 2016Q1

REPORT INFORMATION
  Report Type: Spontaneous
  Country: FR (occurrence: FR)
  Receive Date: 20160210
  Receipt Date: 20160210
  Transmission Date: 20160526
  Serious: Yes (Death, Hospitalization)
  Sender: FDA-Public Use
  Company Number: FR-PFIZER INC-2015395027

PATIENT
  Age: 74 Year
  Sex: Female

DRUGS (13)
  1. OFLOCET /00731801/ [Concomitant]
     Active Substance: OFLOXACIN
     Indication: STAPHYLOCOCCAL INFECTION
     Dosage: 200 MG, 2X/DAY
     Route: 048
     Dates: start: 20150903, end: 20150923
  2. PREGABALIN. [Concomitant]
     Active Substance: PREGABALIN
     Dosage: 100 MG, UNK
     Route: 048
     Dates: start: 20150903, end: 20150920
  3. TAZOCILLINE [Suspect]
     Active Substance: PIPERACILLIN SODIUM\TAZOBACTAM SODIUM
     Indication: PSEUDOMONAS INFECTION
  4. CALCIPARINE SOUS CUTANEE [Concomitant]
     Dosage: 12500 IU, 3X/DAY
     Route: 058
     Dates: start: 20150903, end: 20150917
  5. OFLOCET /00731801/ [Concomitant]
     Active Substance: OFLOXACIN
     Indication: PSEUDOMONAS INFECTION
  6. PLAVIX [Concomitant]
     Active Substance: CLOPIDOGREL BISULFATE
     Dosage: 75 MG, 1X/DAY
     Route: 048
  7. INVANZ [Suspect]
     Active Substance: ERTAPENEM SODIUM
     Indication: PSEUDOMONAS INFECTION
  8. FUROSEMIDE. [Concomitant]
     Active Substance: FUROSEMIDE
     Dosage: 40 MG, 2X/DAY
     Route: 048
  9. TAZOCILLINE [Suspect]
     Active Substance: PIPERACILLIN SODIUM\TAZOBACTAM SODIUM
     Indication: STAPHYLOCOCCAL INFECTION
     Dosage: 4 G, SINGLE
     Route: 042
     Dates: start: 20150925, end: 20150925
  10. INVANZ [Suspect]
     Active Substance: ERTAPENEM SODIUM
     Indication: STAPHYLOCOCCAL INFECTION
     Dosage: 1 G, 1X/DAY
     Route: 058
     Dates: start: 20150925, end: 20150928
  11. MONICOR L.P. [Concomitant]
     Dosage: 20 MG, 4X/DAY
     Route: 048
  12. CLINDAMYCIN [Concomitant]
     Active Substance: CLINDAMYCIN\CLINDAMYCIN PHOSPHATE
     Indication: STAPHYLOCOCCAL INFECTION
     Dosage: 600 MG, 3X/DAY
     Route: 048
     Dates: start: 20150903, end: 20150911
  13. CLINDAMYCIN [Concomitant]
     Active Substance: CLINDAMYCIN\CLINDAMYCIN PHOSPHATE
     Indication: PSEUDOMONAS INFECTION

REACTIONS (1)
  - Immune thrombocytopenic purpura [Recovered/Resolved]

NARRATIVE: CASE EVENT DATE: 20150928
